FAERS Safety Report 8923720 (Version 1)
Quarter: 2012Q4

REPORT INFORMATION
  Report Type: Spontaneous
  Country: DK (occurrence: None)
  Receive Date: 20121115
  Receipt Date: 20121115
  Transmission Date: 20130627
  Serious: Yes (Life-Threatening)
  Sender: FDA-Public Use
  Company Number: 2012MA013249

PATIENT
  Age: 50 Year
  Sex: Female

DRUGS (1)
  1. OXALIPLATIN [Suspect]
     Indication: STOMACH CANCER
     Route: 041

REACTIONS (11)
  - Dyspnoea [None]
  - Dysaesthesia pharynx [None]
  - Confusional state [None]
  - Anxiety [None]
  - Tachycardia [None]
  - Blood pressure systolic increased [None]
  - Hyperventilation [None]
  - Blood lactic acid increased [None]
  - Presyncope [None]
  - Medication error [None]
  - Wrong technique in drug usage process [None]
